FAERS Safety Report 16779582 (Version 2)
Quarter: 2019Q4

REPORT INFORMATION
  Report Type: Other
  Country: DE (occurrence: DE)
  Receive Date: 20190906
  Receipt Date: 20191217
  Transmission Date: 20200122
  Serious: Yes (Hospitalization, Other)
  Sender: FDA-Public Use
  Company Number: DE-EMBRYOTOX-201607606

PATIENT
  Age: 2 Week
  Sex: Female
  Weight: 4.2 kg

DRUGS (8)
  1. LEVETIRACETAM. [Suspect]
     Active Substance: LEVETIRACETAM
     Dosage: 4500 UNK
     Route: 065
  2. LEVETIRACETAM. [Suspect]
     Active Substance: LEVETIRACETAM
     Dosage: 4500 MILLIGRAM, QD, DOSAGE INCREASED FROM 2X2000MG/D TO 2X2250MG/D
     Route: 063
  3. LAMICTAL [Suspect]
     Active Substance: LAMOTRIGINE
     Dosage: 100 MILLIGRAM, QD
     Route: 063
     Dates: start: 2016
  4. LEVETIRACETAM. [Suspect]
     Active Substance: LEVETIRACETAM
     Indication: EPILEPSY
     Dosage: 2000 MG,BID,
     Route: 063
     Dates: start: 2016, end: 2016
  5. LAMICTAL [Suspect]
     Active Substance: LAMOTRIGINE
     Dosage: 100 MILLIGRAM DAILY;
     Route: 064
     Dates: start: 20150826, end: 20160517
  6. LEVETIRACETAM. [Suspect]
     Active Substance: LEVETIRACETAM
     Dosage: 4000 MILLIGRAM, QD
     Route: 064
     Dates: start: 20150826, end: 20160517
  7. LEVETIRACETAM. [Suspect]
     Active Substance: LEVETIRACETAM
     Dosage: 2250 MG,BID,
     Route: 063
     Dates: start: 2016
  8. LAMICTAL [Suspect]
     Active Substance: LAMOTRIGINE
     Indication: EPILEPSY
     Dosage: 50 MG,BID,
     Route: 063

REACTIONS (7)
  - Foetal exposure during pregnancy [Unknown]
  - Dehydration [Recovered/Resolved]
  - Urinary tract infection [Unknown]
  - Gastrooesophageal reflux disease [Not Recovered/Not Resolved]
  - Exposure via breast milk [Unknown]
  - Weight gain poor [Unknown]
  - Selective eating disorder [Not Recovered/Not Resolved]

NARRATIVE: CASE EVENT DATE: 20150826
